FAERS Safety Report 9290616 (Version 1)
Quarter: 2013Q2

REPORT INFORMATION
  Report Type: Spontaneous
  Country: TR (occurrence: None)
  Receive Date: 20130513
  Receipt Date: 20130513
  Transmission Date: 20140414
  Serious: Yes (Death)
  Sender: FDA-Public Use
  Company Number: FK201301467

PATIENT
  Age: 28 Year
  Sex: 0

DRUGS (4)
  1. HEPARIN SODIUM [Suspect]
     Indication: THROMBOLYSIS
     Route: 041
  2. TISSUE-TYPE PLASMINOGEN ACTIVATOR [Concomitant]
  3. STREPTOKINASE (STREPTOKINASE) [Concomitant]
  4. FONDAPARINUX (FONDAPARINUX) [Concomitant]

REACTIONS (3)
  - Heparin-induced thrombocytopenia [None]
  - Cerebrovascular disorder [None]
  - Multi-organ failure [None]
